FAERS Safety Report 7249894-5 (Version None)
Quarter: 2011Q1

REPORT INFORMATION
  Report Type: 
  Country: None (occurrence: None)
  Receive Date: 20110128
  Receipt Date: 20100714
  Transmission Date: 20110831
  Serious: No
  Sender: FDA-Public Use
  Company Number: A0875775A

PATIENT
  Age: 54 Year
  Sex: Female

DRUGS (3)
  1. ADDERALL 10 [Concomitant]
  2. SUBOXONE [Concomitant]
  3. WELLBUTRIN XL [Suspect]
     Indication: DEPRESSION
     Dosage: 300MG PER DAY
     Route: 048
     Dates: start: 20100601

REACTIONS (2)
  - NAUSEA [None]
  - HYPERHIDROSIS [None]
